FAERS Safety Report 15414982 (Version 5)
Quarter: 2018Q4

REPORT INFORMATION
  Report Type: Report from Study
  Country: JP (occurrence: JP)
  Receive Date: 20180921
  Receipt Date: 20181206
  Transmission Date: 20190204
  Serious: Yes (Hospitalization, Other)
  Sender: FDA-Public Use
  Company Number: JP-EISAI MEDICAL RESEARCH-EC-2018-045421

PATIENT
  Age: 78 Year
  Sex: Female
  Weight: 56 kg

DRUGS (31)
  1. LENVATINIB [Suspect]
     Active Substance: LENVATINIB
     Route: 048
     Dates: start: 20181003, end: 20181027
  2. ENALAPRIL [Concomitant]
     Active Substance: ENALAPRIL
  3. BIO-THREE [Concomitant]
     Active Substance: HERBALS
  4. BEZAFIBRATE [Concomitant]
     Active Substance: BEZAFIBRATE
  5. EVEROLIMUS. [Suspect]
     Active Substance: EVEROLIMUS
     Indication: RENAL CELL CARCINOMA
     Route: 048
     Dates: start: 20180907, end: 20180919
  6. EVEROLIMUS. [Suspect]
     Active Substance: EVEROLIMUS
     Route: 048
     Dates: start: 20181003, end: 20181027
  7. HEPARINOID [Concomitant]
     Active Substance: CHONDROITIN SULFATE (BOVINE)
  8. AZULENE [Concomitant]
     Active Substance: AZULENE
  9. CLOTIAZEPAM [Concomitant]
     Active Substance: CLOTIAZEPAM
  10. CALONAL [Concomitant]
     Active Substance: ACETAMINOPHEN
  11. KARY UNI [Concomitant]
     Active Substance: PIRENOXINE
  12. OXINORM (OXYCODONE HYDROCHLORIDE) [Concomitant]
     Active Substance: OXYCODONE HYDROCHLORIDE
  13. RANITIDINE. [Concomitant]
     Active Substance: RANITIDINE
  14. CALFINA [Concomitant]
     Active Substance: ALFACALCIDOL
  15. PRIMPERAN [Concomitant]
     Active Substance: METOCLOPRAMIDE HYDROCHLORIDE
  16. PITAVASTATIN. [Concomitant]
     Active Substance: PITAVASTATIN CALCIUM
  17. OXYCODONE [Suspect]
     Active Substance: OXYCODONE
     Indication: CANCER PAIN
     Route: 048
     Dates: start: 20180908, end: 20180920
  18. AMLODIPINE [Concomitant]
     Active Substance: AMLODIPINE BESYLATE
  19. LOPERAMIDE [Concomitant]
     Active Substance: LOPERAMIDE
  20. NEXIUM [Concomitant]
     Active Substance: ESOMEPRAZOLE MAGNESIUM
  21. INDERAL [Concomitant]
     Active Substance: PROPRANOLOL HYDROCHLORIDE
  22. BAYASPIRIN [Concomitant]
     Active Substance: ASPIRIN
  23. MIYA-BM [Concomitant]
     Active Substance: CLOSTRIDIUM BUTYRICUM SPORES STRAIN M-55
  24. HYALURONIC ACID [Concomitant]
     Active Substance: HYALURONIC ACID
  25. LENVATINIB [Suspect]
     Active Substance: LENVATINIB
     Indication: RENAL CELL CARCINOMA
     Route: 048
     Dates: start: 20180907, end: 20180919
  26. FEBURIC [Concomitant]
     Active Substance: FEBUXOSTAT
  27. FEBURIC [Concomitant]
     Active Substance: FEBUXOSTAT
  28. ZETIA [Suspect]
     Active Substance: EZETIMIBE
     Indication: HYPERLIPIDAEMIA
     Route: 048
     Dates: start: 20181018
  29. ATORVASTATIN [Concomitant]
     Active Substance: ATORVASTATIN
  30. MAGNESIUM OXIDE. [Concomitant]
     Active Substance: MAGNESIUM OXIDE
  31. DOXAZOSIN [Concomitant]
     Active Substance: DOXAZOSIN\DOXAZOSIN MESYLATE

REACTIONS (3)
  - Diarrhoea [Recovered/Resolved]
  - Decreased appetite [Recovering/Resolving]
  - Hypercalcaemia [Recovered/Resolved]

NARRATIVE: CASE EVENT DATE: 20180909
